FAERS Safety Report 12340266 (Version 1)
Quarter: 2016Q2

REPORT INFORMATION
  Report Type: Spontaneous
  Country: US (occurrence: None)
  Receive Date: 20160505
  Receipt Date: 20160505
  Transmission Date: 20160815
  Serious: Yes (Other)
  Sender: FDA-Public Use
  Company Number: None

PATIENT
  Age: 56 Year
  Sex: Male

DRUGS (9)
  1. SAW PALMETTO [Concomitant]
     Active Substance: SAW PALMETTO
  2. MULTI VITAMIN (WIDE SPECTRUM WITH SPIRULINA) [Concomitant]
  3. COQ10 [Concomitant]
     Active Substance: UBIDECARENONE
  4. L-LYSINE [Concomitant]
     Active Substance: LYSINE
  5. B6 [Concomitant]
     Active Substance: PYRIDOXINE HYDROCHLORIDE
  6. SUNFLOWER LECITHIN [Concomitant]
  7. COMPLERA [Suspect]
     Active Substance: EMTRICITABINE\RILPIVIRINE HYDROCHLORIDE\TENOFOVIR DISOPROXIL FUMARATE
     Indication: HIV INFECTION
     Route: 048
  8. L-ARGININE [Concomitant]
     Active Substance: ARGININE
  9. L-CARNITINE [Concomitant]
     Active Substance: LEVOCARNITINE

REACTIONS (5)
  - Intentional product use issue [None]
  - Drug dose omission [None]
  - Metabolic disorder [None]
  - Regurgitation [None]
  - Nausea [None]

NARRATIVE: CASE EVENT DATE: 20141001
